FAERS Safety Report 24696052 (Version 3)
Quarter: 2025Q3

REPORT INFORMATION
  Report Type: Report from Study
  Country: US (occurrence: US)
  Receive Date: 20241204
  Receipt Date: 20250718
  Transmission Date: 20251020
  Serious: Yes (Congenital Anomaly, Other)
  Sender: ALEXION PHARMACEUTICALS
  Company Number: US-AstraZeneca-CH-00750207A

PATIENT
  Sex: Female

DRUGS (2)
  1. STRENSIQ [Suspect]
     Active Substance: ASFOTASE ALFA
     Indication: Hypophosphatasia
     Route: 065
  2. FORTEO [Suspect]
     Active Substance: TERIPARATIDE
     Route: 065

REACTIONS (10)
  - Headache [Unknown]
  - Deafness [Unknown]
  - Excessive cerumen production [Recovering/Resolving]
  - Hypoaesthesia [Unknown]
  - Back disorder [Unknown]
  - Depressed mood [Unknown]
  - Malaise [Unknown]
  - Hypoacusis [Unknown]
  - Nervous system disorder [Unknown]
  - Fatigue [Recovering/Resolving]
